FAERS Safety Report 7923785-6 (Version None)
Quarter: 2011Q4

REPORT INFORMATION
  Report Type: 
  Country: None (occurrence: None)
  Receive Date: 20111117
  Receipt Date: 20110208
  Transmission Date: 20120403
  Serious: No
  Sender: FDA-Public Use
  Company Number: US-AMGEN-USASP2011007616

PATIENT
  Age: 60 Year
  Sex: Female

DRUGS (1)
  1. ENBREL [Suspect]
     Indication: ANKYLOSING SPONDYLITIS
     Dosage: 50 MG, QWK
     Dates: start: 20030301

REACTIONS (9)
  - ROTATOR CUFF SYNDROME [None]
  - TENDON DISORDER [None]
  - FOOT DEFORMITY [None]
  - ARTHRITIS [None]
  - CYSTITIS [None]
  - INJECTION SITE PAIN [None]
  - TENDON RUPTURE [None]
  - OXYGEN SUPPLEMENTATION [None]
  - SINUSITIS [None]
